FAERS Safety Report 7189716-4 (Version None)
Quarter: 2010Q4

REPORT INFORMATION
  Report Type: 
  Country: None (occurrence: None)
  Receive Date: 20101223
  Receipt Date: 20101214
  Transmission Date: 20110411
  Serious: No
  Sender: FDA-Public Use
  Company Number: US-BIOGENIDEC-2010BI044100

PATIENT
  Sex: Male

DRUGS (2)
  1. TYSABRI [Suspect]
     Indication: MULTIPLE SCLEROSIS
     Route: 042
     Dates: start: 20070215, end: 20100726
  2. TYSABRI [Suspect]
     Route: 042
     Dates: start: 20050120, end: 20050223

REACTIONS (1)
  - MUSCULOSKELETAL DISORDER [None]
